FAERS Safety Report 14650039 (Version 1)
Quarter: 2018Q1

REPORT INFORMATION
  Report Type: Spontaneous
  Country: US (occurrence: US)
  Receive Date: 20180316
  Receipt Date: 20180316
  Transmission Date: 20180509
  Serious: Yes (Other)
  Sender: FDA-Public Use
  Company Number: US-NAPPMUNDI-USA-2018-0143020

PATIENT
  Sex: Female

DRUGS (3)
  1. THEOPHYLLINE (040086, 087571 RHODES) [Suspect]
     Active Substance: THEOPHYLLINE ANHYDROUS
     Indication: CHEMICAL BURN OF RESPIRATORY TRACT
  2. THEOPHYLLINE (040086, 087571 RHODES) [Suspect]
     Active Substance: THEOPHYLLINE ANHYDROUS
     Indication: ASTHMA
  3. THEOPHYLLINE (040086, 087571 RHODES) [Suspect]
     Active Substance: THEOPHYLLINE ANHYDROUS
     Indication: BRONCHOSPASM
     Dosage: UNK
     Route: 048
     Dates: start: 198901

REACTIONS (3)
  - Inflammation [Unknown]
  - Reaction to excipient [Unknown]
  - Asthma [Unknown]
